FAERS Safety Report 4880838-7 (Version None)
Quarter: 2005Q4

REPORT INFORMATION
  Report Type: 
  Country: None (occurrence: None)
  Receive Date: 20051223
  Receipt Date: 20051108
  Transmission Date: 20060501
  Serious: No
  Sender: FDA-Public Use
  Company Number: 05P-163-0316656-00

PATIENT
  Age: 55 Year
  Sex: Female
  Weight: 56.6996 kg

DRUGS (8)
  1. HUMIRA [Suspect]
     Indication: RHEUMATOID ARTHRITIS
     Dosage: 40 MG, 2 IN 1 WK, SUBCUTANEOUS
     Route: 058
     Dates: start: 20051024
  2. METHOTREXATE [Concomitant]
  3. FOLIC ACID [Concomitant]
  4. ALPRAZOLAM [Concomitant]
  5. PREDNISONE [Concomitant]
  6. CALCIUM GLUCONATE [Concomitant]
  7. CENTRUM SILVER [Concomitant]
  8. ESOMPRAZOLE [Concomitant]

REACTIONS (7)
  - ASTHENIA [None]
  - BONE PAIN [None]
  - FEELING JITTERY [None]
  - INJECTION SITE IRRITATION [None]
  - MUSCLE SPASMS [None]
  - OSTEITIS [None]
  - PARAESTHESIA [None]
